FAERS Safety Report 4388777-5 (Version None)
Quarter: 2004Q2

REPORT INFORMATION
  Report Type: 
  Country: None (occurrence: None)
  Receive Date: 20040624
  Receipt Date: 20040611
  Transmission Date: 20050107
  Serious: Yes (Hospitalization)
  Sender: FDA-Public Use
  Company Number: 2004US-00329

PATIENT
  Age: 18 Month
  Sex: Male

DRUGS (2)
  1. IBUPROFEN [Suspect]
     Indication: PYREXIA
     Dosage: 50 MG Q4H
  2. ACETAMINOPHEN [Concomitant]

REACTIONS (9)
  - BLOOD BICARBONATE DECREASED [None]
  - DEHYDRATION [None]
  - HYPERKALAEMIA [None]
  - PERITONEAL DIALYSIS [None]
  - RENAL FAILURE ACUTE [None]
  - RENAL TUBULAR NECROSIS [None]
  - RESPIRATORY SYNCYTIAL VIRUS INFECTION [None]
  - SOMNOLENCE [None]
  - TACHYPNOEA [None]
